FAERS Safety Report 8535023 (Version 2)
Quarter: 2013Q2

REPORT INFORMATION
  Report Type: Spontaneous
  Country: US (occurrence: None)
  Receive Date: 20120327
  Receipt Date: 20120709
  Transmission Date: 20140414
  Serious: Yes (Hospitalization, Disabling)
  Sender: FDA-Public Use
  Company Number: PHHY2011US11638

PATIENT
  Age: 65 Year
  Sex: Male
  Weight: 106 kg

DRUGS (5)
  1. GLEEVEC [Suspect]
     Indication: ACUTE LYMPHOCYTIC LEUKAEMIA
     Dosage: 400 MG, QD, ORAL
     Route: 048
     Dates: start: 20101113, end: 20110616
  2. ACYCLOVIR [Concomitant]
  3. DIGOXIN (DIGOXIN) [Concomitant]
  4. NADOLOL [Concomitant]
  5. SOTALOL [Concomitant]

REACTIONS (2)
  - ATRIAL FIBRILLATION [None]
  - NAUSEA [None]
